FAERS Safety Report 5630429-5 (Version None)
Quarter: 2008Q1

REPORT INFORMATION
  Report Type: 
  Country: None (occurrence: None)
  Receive Date: 20080219
  Receipt Date: 20080211
  Transmission Date: 20080703
  Serious: Yes (Hospitalization)
  Sender: FDA-Public Use
  Company Number: IT-SOLVAY-00208000638

PATIENT
  Age: 22982 Day
  Sex: Female

DRUGS (1)
  1. PROCAPTAN [Suspect]
     Indication: HYPERTENSION
     Dosage: DAILY DOSE: 4 MILLIGRAM(S)
     Route: 048
     Dates: start: 20060810, end: 20060901

REACTIONS (3)
  - FALL [None]
  - HEAD INJURY [None]
  - MUSCLE SPASMS [None]
